FAERS Safety Report 5957265-4 (Version None)
Quarter: 2008Q4

REPORT INFORMATION
  Report Type: 
  Country: None (occurrence: None)
  Receive Date: 20081118
  Receipt Date: 20081113
  Transmission Date: 20090506
  Serious: Yes (Other)
  Sender: FDA-Public Use
  Company Number: US-ROXANE LABORATORIES, INC.-2008-RO-00227RO

PATIENT
  Age: 50 Year
  Sex: Female

DRUGS (14)
  1. PREDNISONE TAB [Suspect]
     Indication: NECROTISING SCLERITIS
     Dosage: 60MG
     Route: 048
  2. ZYMAR [Suspect]
     Indication: EYE PAIN
  3. ZYMAR [Suspect]
     Indication: OCULAR HYPERAEMIA
  4. CYCLOPENTOLATE HCL [Suspect]
     Indication: EYE PAIN
  5. CYCLOPENTOLATE HCL [Suspect]
     Indication: OCULAR HYPERAEMIA
  6. IBUPROFEN TABLETS [Suspect]
     Indication: EPISCLERITIS
     Dosage: 1200MG
  7. PREDNISOLONE ACETATE [Suspect]
     Indication: EPISCLERITIS
  8. FLURBIPROFEN [Suspect]
     Indication: HERPES ZOSTER OPHTHALMIC
     Dosage: 300MG
  9. VALACYCLOVIR [Suspect]
     Indication: HERPES ZOSTER OPHTHALMIC
     Dosage: 3G
  10. STEROIDS [Suspect]
     Indication: NECROTISING SCLERITIS
     Route: 061
  11. CYCLOPLEGIA [Suspect]
     Indication: NECROTISING SCLERITIS
  12. TOBRAMYCIN [Concomitant]
     Indication: PSEUDOMONAS INFECTION
     Route: 061
  13. CEFTAZIDIME [Concomitant]
     Indication: PSEUDOMONAS INFECTION
  14. TOBRADEX [Concomitant]
     Indication: PSEUDOMONAS INFECTION
     Route: 031

REACTIONS (4)
  - CATARACT SUBCAPSULAR [None]
  - CORNEAL OPACITY [None]
  - NECROTISING SCLERITIS [None]
  - PSEUDOMONAS INFECTION [None]
